FAERS Safety Report 6623062-X (Version None)
Quarter: 2010Q1

REPORT INFORMATION
  Report Type: 
  Country: None (occurrence: None)
  Receive Date: 20100310
  Receipt Date: 20100104
  Transmission Date: 20100710
  Serious: No
  Sender: FDA-Public Use
  Company Number: US-BIOGENIDEC-2009BI040251

PATIENT
  Age: 45 Year
  Sex: Female

DRUGS (1)
  1. AVONEX [Suspect]
     Indication: MULTIPLE SCLEROSIS
     Route: 030
     Dates: start: 20080625

REACTIONS (13)
  - BALANCE DISORDER [None]
  - CEREBRAL ATROPHY [None]
  - COGNITIVE DISORDER [None]
  - DISTURBANCE IN ATTENTION [None]
  - DYSGRAPHIA [None]
  - EPISTAXIS [None]
  - INFLUENZA LIKE ILLNESS [None]
  - MENTAL IMPAIRMENT [None]
  - METAL POISONING [None]
  - RHINALGIA [None]
  - RHINORRHOEA [None]
  - SPEECH DISORDER [None]
  - TREMOR [None]
